FAERS Safety Report 18147105 (Version 2)
Quarter: 2020Q3

REPORT INFORMATION
  Report Type: Report from Study
  Country: CN (occurrence: CN)
  Receive Date: 20200814
  Receipt Date: 20200819
  Transmission Date: 20201103
  Serious: No
  Sender: FDA-Public Use
  Company Number: CN-AMGEN-CHNNI2020130399

PATIENT
  Age: 72 Year
  Sex: Female

DRUGS (6)
  1. HUMAN RECOMBINANT TRANSFORMING GROWTH FACTOR BETA3 [Concomitant]
     Indication: ANAEMIA
     Dosage: 3000U, BIW, INTRAVENOUS INJECTION
     Route: 042
     Dates: start: 20120829
  2. PERITONEAL DIALYSIS (LACTATE?G1.5%) [Concomitant]
     Indication: PRODUCT USED FOR UNKNOWN INDICATION
     Dosage: 2000ML, QID, FLUSHING
     Route: 065
     Dates: start: 20161125
  3. NIFEDIPINE. [Concomitant]
     Active Substance: NIFEDIPINE
     Indication: HYPERTENSION
     Dosage: 30 MG, BID
     Route: 048
     Dates: start: 2017
  4. CALCITRIOL. [Concomitant]
     Active Substance: CALCITRIOL
     Indication: ELECTROLYTE IMBALANCE
     Dosage: 0.25 UG, QD
     Route: 048
     Dates: start: 20170102
  5. CINACALCET HCL ? KHK [Suspect]
     Active Substance: CINACALCET HYDROCHLORIDE
     Indication: ELECTROLYTE IMBALANCE
     Dosage: 25 MG, QD
     Route: 048
     Dates: start: 20170710
  6. FERROUS SUCCINATE [Concomitant]
     Active Substance: FERROUS SUCCINATE
     Indication: ANAEMIA
     Dosage: 0.1 G, TID
     Route: 048
     Dates: start: 2012

REACTIONS (1)
  - No adverse event [Unknown]
